FAERS Safety Report 4755846-7 (Version None)
Quarter: 2005Q3

REPORT INFORMATION
  Report Type: 
  Country: None (occurrence: None)
  Receive Date: 20050830
  Receipt Date: 20050516
  Transmission Date: 20060218
  Serious: No
  Sender: FDA-Public Use
  Company Number: US-BRISTOL-MYERS SQUIBB COMPANY-12970174

PATIENT
  Age: 50 Year
  Sex: Male
  Weight: 65 kg

DRUGS (2)
  1. ERBITUX [Suspect]
     Indication: TONGUE NEOPLASM MALIGNANT STAGE UNSPECIFIED
     Dates: start: 20050401, end: 20050401
  2. OXYCONTIN [Concomitant]

REACTIONS (2)
  - PYREXIA [None]
  - RASH [None]
